FAERS Safety Report 8909156 (Version 3)
Quarter: 2014Q4

REPORT INFORMATION
  Report Type: Spontaneous
  Country: US (occurrence: US)
  Receive Date: 20121114
  Receipt Date: 20141029
  Transmission Date: 20150529
  Serious: Yes (Other)
  Sender: FDA-Public Use
  Company Number: US-BAYER-2012-116393

PATIENT
  Age: 18 Year
  Sex: Female
  Weight: 53.97 kg

DRUGS (2)
  1. CYTOTEC [Concomitant]
     Active Substance: MISOPROSTOL
     Dosage: UNK
     Dates: start: 20100316
  2. MIRENA [Suspect]
     Active Substance: LEVONORGESTREL
     Indication: CONTRACEPTION
     Dosage: 20 MCG/24HR, CONT
     Route: 015
     Dates: start: 20090512, end: 20100324

REACTIONS (11)
  - Procedural haemorrhage [None]
  - Endometriosis [None]
  - Haemorrhage in pregnancy [None]
  - Device dislocation [None]
  - Uterine perforation [None]
  - Injury [None]
  - Abortion spontaneous [None]
  - Post procedural discomfort [None]
  - Pregnancy with contraceptive device [None]
  - Fear of disease [None]
  - Pelvic pain [None]

NARRATIVE: CASE EVENT DATE: 20090512
